FAERS Safety Report 17260716 (Version 7)
Quarter: 2021Q2

REPORT INFORMATION
  Report Type: Other
  Country: US (occurrence: US)
  Receive Date: 20200113
  Receipt Date: 20210510
  Transmission Date: 20210716
  Serious: Yes (Hospitalization, Other)
  Sender: FDA-Public Use
  Company Number: US-ROCHE-2512205

PATIENT
  Age: 88 Year
  Sex: Female
  Weight: 49.94 kg

DRUGS (8)
  1. ESBRIET [Suspect]
     Active Substance: PIRFENIDONE
     Indication: IDIOPATHIC PULMONARY FIBROSIS
     Dosage: TAKE 3 TABLET(S) BY MOUTH 4 TIMES A DAY WITH MEALS
     Route: 048
     Dates: start: 2018
  2. ESBRIET [Suspect]
     Active Substance: PIRFENIDONE
     Indication: HYPOXIA
     Dosage: TAKE 3 TABLET(S) BY MOUTH 3 TIMES A DAY WITH MEALS
     Route: 048
  3. ESBRIET [Suspect]
     Active Substance: PIRFENIDONE
     Indication: PULMONARY FIBROSIS
     Dosage: TAKE 1 TABLET BY MOUTH 3 TIMES A DAY
     Route: 048
  4. SIMVASTATIN. [Concomitant]
     Active Substance: SIMVASTATIN
     Indication: BLOOD CHOLESTEROL NORMAL
     Route: 048
  5. ESBRIET [Suspect]
     Active Substance: PIRFENIDONE
     Indication: ACUTE RESPIRATORY FAILURE
     Dosage: TAKE 3 TABLET(S) BY MOUTH 3 TIMES A DAY WITH MEALS
     Route: 048
     Dates: start: 201909
  6. VITAMIN D3 [Concomitant]
     Active Substance: CHOLECALCIFEROL
     Indication: ARTHRITIS
     Route: 048
  7. LISINOPRIL. [Concomitant]
     Active Substance: LISINOPRIL
     Indication: BLOOD PRESSURE NORMAL
     Route: 048
  8. ESBRIET [Suspect]
     Active Substance: PIRFENIDONE
     Dosage: 1 TAB
     Route: 048

REACTIONS (7)
  - Weight increased [Not Recovered/Not Resolved]
  - Weight decreased [Recovered/Resolved]
  - Haemorrhage [Recovered/Resolved]
  - Pain [Not Recovered/Not Resolved]
  - Hip fracture [Unknown]
  - Fall [Unknown]
  - Upper limb fracture [Unknown]

NARRATIVE: CASE EVENT DATE: 2018
